FAERS Safety Report 22620649 (Version 2)
Quarter: 2023Q2

REPORT INFORMATION
  Report Type: Spontaneous
  Country: FR (occurrence: FR)
  Receive Date: 20230620
  Receipt Date: 20230626
  Transmission Date: 20230721
  Serious: Yes (Other)
  Sender: FDA-Public Use
  Company Number: FR-MYLANLABS-2023M1053983

PATIENT
  Age: 77 Year
  Sex: Male

DRUGS (5)
  1. METHOTREXATE [Suspect]
     Active Substance: METHOTREXATE
     Indication: Central nervous system lymphoma
     Dosage: FIRST LINE WITH R-MPVA PROTOCOL
     Route: 065
  2. CYTARABINE [Concomitant]
     Active Substance: CYTARABINE
     Indication: Central nervous system lymphoma
     Dosage: FIRST LINE WITH R-MPVA PROTOCOL
     Route: 065
  3. PROCARBAZINE [Concomitant]
     Active Substance: PROCARBAZINE
     Indication: Central nervous system lymphoma
     Dosage: FIRST LINE WITH R-MPVA PROTOCOL
     Route: 065
  4. RITUXIMAB [Concomitant]
     Active Substance: RITUXIMAB
     Indication: Central nervous system lymphoma
     Dosage: FIRST LINE WITH R-MPVA PROTOCOL
     Route: 065
  5. VINCRISTINE [Concomitant]
     Active Substance: VINCRISTINE
     Indication: Central nervous system lymphoma
     Dosage: FIRST LINE WITH R-MPVA PROTOCOL
     Route: 065

REACTIONS (3)
  - Nephropathy toxic [Recovered/Resolved]
  - Drug ineffective [Unknown]
  - Off label use [Unknown]
